FAERS Safety Report 9635702 (Version 2)
Quarter: 2013Q4

REPORT INFORMATION
  Report Type: Report from Study
  Country: AU (occurrence: AU)
  Receive Date: 20131021
  Receipt Date: 20131028
  Transmission Date: 20140711
  Serious: Yes (Hospitalization)
  Sender: FDA-Public Use
  Company Number: AU-GLAXOSMITHKLINE-B0921609B

PATIENT
  Age: 45 Year
  Sex: Male

DRUGS (6)
  1. DABRAFENIB [Suspect]
     Indication: METASTATIC MALIGNANT MELANOMA
     Dosage: 150MG TWICE PER DAY
     Route: 048
     Dates: start: 20130726, end: 20130927
  2. TRAMETINIB [Suspect]
     Indication: METASTATIC MALIGNANT MELANOMA
     Dosage: 2MG PER DAY
     Route: 048
     Dates: start: 20130726
  3. DEXAMETHASONE [Concomitant]
     Indication: PAIN
     Dosage: 2MG PER DAY
     Route: 048
     Dates: start: 201307
  4. AMITRIPTYLINE [Concomitant]
     Indication: PAIN
     Dosage: 10MG PER DAY
     Route: 048
     Dates: start: 201307
  5. PREGABALIN [Concomitant]
     Indication: PAIN
     Dosage: 150MG TWICE PER DAY
     Route: 048
     Dates: start: 201307
  6. OMEPRAZOLE [Concomitant]
     Indication: GASTRITIS PROPHYLAXIS
     Dosage: 20MG PER DAY
     Route: 048
     Dates: start: 201307

REACTIONS (1)
  - Rash [Not Recovered/Not Resolved]
